FAERS Safety Report 11638380 (Version 1)
Quarter: 2015Q4

REPORT INFORMATION
  Report Type: Spontaneous
  Country: US (occurrence: US)
  Receive Date: 20151016
  Receipt Date: 20151016
  Transmission Date: 20160304
  Serious: Yes (Other)
  Sender: FDA-Public Use
  Company Number: US-SHIRE-US201512577

PATIENT
  Sex: Male
  Weight: 65.31 kg

DRUGS (2)
  1. VYVANSE [Suspect]
     Active Substance: LISDEXAMFETAMINE DIMESYLATE
     Indication: ATTENTION DEFICIT/HYPERACTIVITY DISORDER
     Dosage: 50 MG, 1X/DAY:QD
     Route: 048
     Dates: start: 201506, end: 20151005
  2. KLONOPIN [Concomitant]
     Active Substance: CLONAZEPAM
     Indication: ANXIETY
     Dosage: 1 MG, 3X/DAY:TID
     Route: 048

REACTIONS (14)
  - Laziness [Unknown]
  - Dyskinesia [Not Recovered/Not Resolved]
  - Thirst [Unknown]
  - Musculoskeletal stiffness [Unknown]
  - Victim of sexual abuse [Recovered/Resolved]
  - Victim of abuse [Recovered/Resolved]
  - Eye movement disorder [Not Recovered/Not Resolved]
  - Amnesia [Not Recovered/Not Resolved]
  - Weight increased [Recovering/Resolving]
  - Apathy [Recovering/Resolving]
  - Social avoidant behaviour [Not Recovered/Not Resolved]
  - Condition aggravated [Not Recovered/Not Resolved]
  - Hyperphagia [Recovering/Resolving]
  - Drug ineffective [Recovered/Resolved]

NARRATIVE: CASE EVENT DATE: 2015
